FAERS Safety Report 24769991 (Version 1)
Quarter: 2024Q4

REPORT INFORMATION
  Report Type: Spontaneous
  Country: FR (occurrence: FR)
  Receive Date: 20241224
  Receipt Date: 20241224
  Transmission Date: 20250114
  Serious: Yes (Other)
  Sender: HIKMA
  Company Number: FR-HIKMA PHARMACEUTICALS USA INC.-FR-H14001-24-11626

PATIENT
  Age: 94 Year
  Sex: Female
  Weight: 79 kg

DRUGS (1)
  1. VANCOMYCIN HYDROCHLORIDE [Suspect]
     Active Substance: VANCOMYCIN HYDROCHLORIDE
     Indication: Arthritis bacterial
     Dosage: 2250 MILLIGRAM, QD
     Route: 042
     Dates: start: 20240901, end: 20240904

REACTIONS (1)
  - Infusion site thrombosis [Not Recovered/Not Resolved]

NARRATIVE: CASE EVENT DATE: 20240904
